FAERS Safety Report 4744572-6 (Version None)
Quarter: 2005Q3

REPORT INFORMATION
  Report Type: 
  Country: None (occurrence: None)
  Receive Date: 20050812
  Receipt Date: 20050802
  Transmission Date: 20060218
  Serious: Yes (Hospitalization)
  Sender: FDA-Public Use
  Company Number: JP-ABBOTT-05P-087-0307579-00

PATIENT
  Age: 54 Year
  Sex: Female
  Weight: 47 kg

DRUGS (7)
  1. CLARITHROMYCIN [Suspect]
     Indication: GASTRIC ULCER HELICOBACTER
     Dosage: NOT REPORTED
     Dates: end: 20030101
  2. AMOXICILLIN [Suspect]
     Indication: GASTRIC ULCER HELICOBACTER
     Dosage: NOT REPORTED, PER ORAL
     Dates: end: 20030101
  3. UNKNOWN DRUG [Suspect]
     Indication: GASTRIC ULCER HELICOBACTER
     Dosage: NOT REPORTED
     Dates: end: 20030101
  4. EPALRESTAT [Concomitant]
     Indication: DIABETIC NEUROPATHY
     Dates: start: 20030826
  5. INSULIN [Concomitant]
     Indication: DIABETES MELLITUS INSULIN-DEPENDENT
     Dosage: NOT REPORTED
  6. MEXILETINE HCL [Concomitant]
     Indication: DIABETIC NEUROPATHY
  7. THIAMINE HCL [Concomitant]
     Dates: start: 20030925

REACTIONS (12)
  - ANAEMIA [None]
  - ANOREXIA [None]
  - C-REACTIVE PROTEIN INCREASED [None]
  - CARDIAC MURMUR [None]
  - CARDIOMEGALY [None]
  - DIABETIC NEUROPATHY [None]
  - DIARRHOEA [None]
  - HEART RATE INCREASED [None]
  - MYALGIA [None]
  - POLYNEUROPATHY [None]
  - RENAL FAILURE ACUTE [None]
  - VITAMIN B1 DEFICIENCY [None]
